FAERS Safety Report 11183802 (Version 1)
Quarter: 2015Q2

REPORT INFORMATION
  Report Type: Spontaneous
  Country: US (occurrence: US)
  Receive Date: 20150612
  Receipt Date: 20150612
  Transmission Date: 20150821
  Serious: No
  Sender: FDA-Public Use
  Company Number: US-009507513-1506USA002118

PATIENT
  Sex: Female

DRUGS (1)
  1. RAGWITEK [Suspect]
     Active Substance: AMBROSIA ARTEMISIIFOLIA POLLEN
     Dosage: 12 AMB UNITS, ONCE DAILY
     Route: 060

REACTIONS (2)
  - Lip swelling [Recovered/Resolved]
  - Drug dose omission [Unknown]
